FAERS Safety Report 5639557-1 (Version None)
Quarter: 2008Q1

REPORT INFORMATION
  Report Type: 
  Country: None (occurrence: None)
  Receive Date: 20080226
  Receipt Date: 20080220
  Transmission Date: 20080703
  Serious: Yes (Other)
  Sender: FDA-Public Use
  Company Number: AU-MERCK-0802AUS00196

PATIENT
  Age: 70 Year
  Sex: Female
  Weight: 75 kg

DRUGS (6)
  1. FOSAMAX [Suspect]
     Indication: OSTEOPOROSIS
     Route: 048
     Dates: start: 20020101, end: 20080101
  2. LEVOTHYROXINE SODIUM [Concomitant]
     Indication: HYPOTHYROIDISM
     Route: 048
     Dates: start: 19880101
  3. PREDNISONE [Concomitant]
     Indication: SYSTEMIC LUPUS ERYTHEMATOSUS
     Route: 065
     Dates: start: 19880101
  4. HYDROXYCHLOROQUINE SULFATE [Concomitant]
     Indication: SYSTEMIC LUPUS ERYTHEMATOSUS
     Route: 048
     Dates: start: 19880101
  5. OMEPRAZOLE MAGNESIUM [Concomitant]
     Indication: HIATUS HERNIA
     Route: 048
  6. CALCIUM CARBONATE [Concomitant]
     Indication: OSTEOPOROSIS
     Route: 048

REACTIONS (5)
  - GASTROINTESTINAL CARCINOMA [None]
  - GINGIVAL PAIN [None]
  - TOOTH DISORDER [None]
  - TOOTH FRACTURE [None]
  - WRIST FRACTURE [None]
